FAERS Safety Report 10597365 (Version 2)
Quarter: 2015Q4

REPORT INFORMATION
  Report Type: Spontaneous
  Country: IT (occurrence: IT)
  Receive Date: 20141121
  Receipt Date: 20151021
  Transmission Date: 20160304
  Serious: Yes (Death, Hospitalization)
  Sender: FDA-Public Use
  Company Number: IT-AUROBINDO-AUR-APL-2014-12213

PATIENT
  Age: 59 Year
  Sex: Male

DRUGS (3)
  1. OLANZAPINE. [Suspect]
     Active Substance: OLANZAPINE
     Indication: MENTAL RETARDATION
     Dosage: UNK
     Route: 065
  2. LORAZEPAM. [Suspect]
     Active Substance: LORAZEPAM
     Indication: MENTAL RETARDATION
     Dosage: UNK
     Route: 065
  3. BIPERIDEN [Suspect]
     Active Substance: BIPERIDEN
     Indication: MENTAL RETARDATION
     Dosage: UNK
     Route: 065

REACTIONS (22)
  - Peritonitis [Unknown]
  - Blood creatine phosphokinase increased [Unknown]
  - Lipase decreased [Unknown]
  - Abdominal distension [Unknown]
  - Amylase decreased [Unknown]
  - Volvulus [Unknown]
  - Acute abdomen [Unknown]
  - General physical health deterioration [Unknown]
  - White blood cell count increased [Unknown]
  - Red blood cell count decreased [Unknown]
  - Blood calcium decreased [Unknown]
  - Death [Fatal]
  - Stupor [Unknown]
  - Aspartate aminotransferase increased [Unknown]
  - Megacolon [Recovered/Resolved]
  - Haemoglobin decreased [Unknown]
  - Haematocrit decreased [Unknown]
  - Gastrointestinal perforation [Unknown]
  - Blood lactate dehydrogenase increased [Unknown]
  - Protein total decreased [Unknown]
  - Faecaloma [Unknown]
  - Neutrophil count increased [Unknown]
